FAERS Safety Report 5511799-5 (Version None)
Quarter: 2007Q4

REPORT INFORMATION
  Report Type: 
  Country: None (occurrence: None)
  Receive Date: 20071109
  Receipt Date: 20071029
  Transmission Date: 20080405
  Serious: Yes (Other)
  Sender: FDA-Public Use
  Company Number: US-PFIZER INC-2007090858

PATIENT

DRUGS (1)
  1. DILANTIN [Suspect]
     Route: 042

REACTIONS (3)
  - ANTICONVULSANT DRUG LEVEL INCREASED [None]
  - BLOOD ALBUMIN DECREASED [None]
  - LOSS OF CONSCIOUSNESS [None]
